FAERS Safety Report 17040373 (Version 1)
Quarter: 2019Q4

REPORT INFORMATION
  Report Type: Spontaneous
  Country: US (occurrence: US)
  Receive Date: 20191117
  Receipt Date: 20191117
  Transmission Date: 20200122
  Serious: No
  Sender: FDA-Public Use
  Company Number: US-TORRENT-00009259

PATIENT
  Sex: Female

DRUGS (1)
  1. LOSARTAN. [Suspect]
     Active Substance: LOSARTAN
     Indication: HYPERTENSION
     Dosage: HALF TABLET FOR 4 DAYS
     Dates: start: 20190829

REACTIONS (7)
  - Feeling abnormal [Unknown]
  - Tinnitus [Unknown]
  - Myalgia [Unknown]
  - Somnolence [Unknown]
  - Fatigue [Unknown]
  - Headache [Unknown]
  - Pain [Unknown]
